FAERS Safety Report 4615762-8 (Version None)
Quarter: 2005Q2

REPORT INFORMATION
  Report Type: 
  Country: None (occurrence: None)
  Receive Date: 20050310
  Receipt Date: 20050202
  Transmission Date: 20051028
  Serious: No
  Sender: FDA-Public Use
  Company Number: A03200500324

PATIENT
  Age: 41 Year
  Sex: Female
  Weight: 70.3075 kg

DRUGS (3)
  1. ELOXATIN [Suspect]
     Indication: COLORECTAL CANCER
     Dosage: 180 MG OTHER - INTRAVENOUS NOS
     Route: 042
     Dates: start: 20050104, end: 20050104
  2. FLUOROURACIL [Concomitant]
  3. LEUCOVORIN [Concomitant]

REACTIONS (1)
  - PROCTALGIA [None]
